FAERS Safety Report 8895097 (Version 1)
Quarter: 2012Q4

REPORT INFORMATION
  Report Type: 
  Country: FR (occurrence: FR)
  Receive Date: 20121107
  Receipt Date: 20121107
  Transmission Date: 20130627
  Serious: Yes (Hospitalization)
  Sender: FDA-Public Use
  Company Number: FR-UCBSA-069871

PATIENT
  Age: 55 Year
  Sex: Female

DRUGS (9)
  1. KEPPRA [Suspect]
     Route: 048
     Dates: start: 20120924, end: 20120925
  2. KEPPRA [Suspect]
     Route: 048
     Dates: start: 2012, end: 201209
  3. KEPPRA [Suspect]
     Route: 048
     Dates: start: 2012, end: 2012
  4. IRESSA [Suspect]
     Dosage: DAILY DOSE: 250 MG
     Route: 048
     Dates: start: 201103, end: 20120920
  5. DOXYCYCLINE [Suspect]
     Dosage: DAILY DOSE: 100 MG
     Route: 048
     Dates: end: 20120920
  6. MEDROL [Suspect]
     Dosage: DAILY DOSE: 100 MG
     Route: 048
  7. EFFEXOR [Suspect]
     Dosage: DAILY DOSE: 37.5 MG
     Route: 048
  8. TOPALGIC [Concomitant]
  9. PRIMPERON [Concomitant]

REACTIONS (4)
  - Encephalopathy [Recovered/Resolved]
  - Epilepsy [Unknown]
  - Convulsion [Recovered/Resolved]
  - Somnolence [Recovering/Resolving]
